FAERS Safety Report 8359290-5 (Version None)
Quarter: 2012Q2

REPORT INFORMATION
  Report Type: 
  Country: None (occurrence: None)
  Receive Date: 20120514
  Receipt Date: 20120514
  Transmission Date: 20120825
  Serious: Yes (Other)
  Sender: FDA-Public Use
  Company Number: None

PATIENT
  Age: 25 Year
  Sex: Female
  Weight: 70.3075 kg

DRUGS (1)
  1. REMERON [Suspect]
     Indication: GENERALISED ANXIETY DISORDER
     Dosage: 1 TABLET AT NIGHT PO
     Route: 048
     Dates: start: 20100926, end: 20100926

REACTIONS (5)
  - NAUSEA [None]
  - LOSS OF CONSCIOUSNESS [None]
  - HEAD INJURY [None]
  - AMNESIA [None]
  - BLINDNESS TRANSIENT [None]
